FAERS Safety Report 20564062 (Version 1)
Quarter: 2022Q1

REPORT INFORMATION
  Report Type: Spontaneous
  Country: US (occurrence: US)
  Receive Date: 20220308
  Receipt Date: 20220308
  Transmission Date: 20220423
  Serious: No
  Sender: FDA-Public Use
  Company Number: US-SA-SAC20220303000474

PATIENT
  Sex: Female

DRUGS (1)
  1. DUPIXENT [Suspect]
     Active Substance: DUPILUMAB
     Indication: Unevaluable event
     Dosage: DOSE: 200 MG/ 1.14 FREQUENCY: INJECT 200 MG SUBCUTANEOUSLY EVERY 2
     Route: 058
     Dates: start: 20200130

REACTIONS (1)
  - Weight decreased [Unknown]
